FAERS Safety Report 9207069 (Version 3)
Quarter: 2013Q2

REPORT INFORMATION
  Report Type: Spontaneous
  Country: JP (occurrence: JP)
  Receive Date: 20130403
  Receipt Date: 20130522
  Transmission Date: 20140414
  Serious: Yes (Hospitalization, Other)
  Sender: FDA-Public Use
  Company Number: PHHY2012JP112815

PATIENT
  Age: 66 Year
  Sex: Female
  Weight: 30 kg

DRUGS (1)
  1. COMTAN [Suspect]
     Indication: PARKINSON^S DISEASE
     Dosage: 500 MG, DAILY
     Route: 048
     Dates: start: 20110408, end: 20121204

REACTIONS (6)
  - Pneumonia aspiration [Recovered/Resolved]
  - Hallucination [Unknown]
  - Haemoglobin decreased [Recovered/Resolved]
  - Red blood cell count decreased [Recovered/Resolved]
  - Haematocrit decreased [Recovered/Resolved]
  - White blood cell count decreased [Recovered/Resolved]
